FAERS Safety Report 18749677 (Version 2)
Quarter: 2021Q2

REPORT INFORMATION
  Report Type: Other
  Country: US (occurrence: US)
  Receive Date: 20210117
  Receipt Date: 20210418
  Transmission Date: 20210717
  Serious: No
  Sender: FDA-Public Use
  Company Number: US-AMAG PHARMACEUTICALS, INC.-AMAG202004380

PATIENT
  Age: 34 Year
  Sex: Female

DRUGS (4)
  1. MAKENA [Suspect]
     Active Substance: HYDROXYPROGESTERONE CAPROATE
     Indication: PREMATURE DELIVERY
     Route: 058
     Dates: start: 20201207, end: 20201214
  2. FERROUS SULFATE. [Concomitant]
     Active Substance: FERROUS SULFATE
     Dates: start: 20201103
  3. OB COMPLETE [Concomitant]
     Dosage: 30MG?10MG
     Dates: start: 20201020
  4. ASPIRIN. [Concomitant]
     Active Substance: ASPIRIN
     Dates: start: 20201020

REACTIONS (1)
  - Therapy cessation [Unknown]

NARRATIVE: CASE EVENT DATE: 20201214
